FAERS Safety Report 16856054 (Version 1)
Quarter: 2019Q3

REPORT INFORMATION
  Report Type: Spontaneous
  Country: US (occurrence: US)
  Receive Date: 20190926
  Receipt Date: 20190926
  Transmission Date: 20191005
  Serious: No
  Sender: FDA-Public Use
  Company Number: US-PFIZER INC-2019410880

PATIENT
  Sex: Female

DRUGS (3)
  1. KAYEXALATE [Suspect]
     Active Substance: SODIUM POLYSTYRENE SULFONATE
     Dosage: UNK
  2. IBRANCE [Suspect]
     Active Substance: PALBOCICLIB
     Dosage: UNK
  3. BUMETANIDE. [Suspect]
     Active Substance: BUMETANIDE
     Dosage: UNK

REACTIONS (2)
  - Pollakiuria [Unknown]
  - Blood potassium increased [Unknown]
